FAERS Safety Report 23978320 (Version 1)
Quarter: 2024Q2

REPORT INFORMATION
  Report Type: Spontaneous
  Country: US (occurrence: US)
  Receive Date: 20240614
  Receipt Date: 20240614
  Transmission Date: 20240715
  Serious: Yes (Other)
  Sender: FDA-Public Use
  Company Number: US-COOPERSURGICAL, INC.-2024CPS001561

PATIENT
  Age: 37 Year
  Sex: Female

DRUGS (4)
  1. PARAGARD T 380A [Suspect]
     Active Substance: COPPER
     Indication: Contraception
     Dosage: UNK
     Route: 015
     Dates: start: 202210
  2. VITAMINS NOS [Concomitant]
     Active Substance: VITAMINS
  3. ZINC [Concomitant]
     Active Substance: PYRITHIONE ZINC\ZINC\ZINC CHLORIDE
  4. PROBIOTICS NOS [Concomitant]
     Active Substance: PROBIOTICS NOS

REACTIONS (4)
  - Cardiac flutter [Unknown]
  - Dyspnoea at rest [Unknown]
  - Ventricular extrasystoles [Unknown]
  - Extrasystoles [Unknown]

NARRATIVE: CASE EVENT DATE: 20231001
